FAERS Safety Report 5049969-5 (Version None)
Quarter: 2006Q3

REPORT INFORMATION
  Report Type: 
  Country: None (occurrence: None)
  Receive Date: 20060707
  Receipt Date: 20060621
  Transmission Date: 20061208
  Serious: Yes (Hospitalization, Other)
  Sender: FDA-Public Use
  Company Number: 200612718BWH

PATIENT
  Age: 76 Year
  Sex: Male
  Weight: 88.4 kg

DRUGS (14)
  1. SORAFENIB OR PLACEBO (UNCODEABLE ^INVESTIGATIONAL DRUG^) [Suspect]
     Indication: METASTATIC MALIGNANT MELANOMA
     Dosage: 400 MG, BID, ORAL
     Route: 048
     Dates: start: 20060130, end: 20060426
  2. DACARBAZINE [Suspect]
     Indication: METASTATIC MALIGNANT MELANOMA
     Dosage: Q3WK, INTRAVENOUS
     Route: 042
     Dates: start: 20060130, end: 20060410
  3. FLOMAX [Concomitant]
  4. VYTORIN [Concomitant]
  5. MULTI-VITAMIN [Concomitant]
  6. LECITHIN [Concomitant]
  7. ASCORBIC ACID [Concomitant]
  8. TYLENOL (CAPLET) [Concomitant]
  9. DEXAMETHASONE TAB [Concomitant]
  10. LORAZEPAM [Concomitant]
  11. GRANISETRON  HCL [Concomitant]
  12. COMPAZINE [Concomitant]
  13. KYTRIL [Concomitant]
  14. ALEVE [Concomitant]

REACTIONS (7)
  - ANGINA PECTORIS [None]
  - ATRIOVENTRICULAR BLOCK FIRST DEGREE [None]
  - CORONARY ARTERY OCCLUSION [None]
  - MITRAL VALVE INCOMPETENCE [None]
  - MYOCARDIAL ISCHAEMIA [None]
  - PERICARDIAL EFFUSION [None]
  - VENTRICULAR DYSFUNCTION [None]
